FAERS Safety Report 19479367 (Version 2)
Quarter: 2021Q3

REPORT INFORMATION
  Report Type: Spontaneous
  Country: US (occurrence: US)
  Receive Date: 20210701
  Receipt Date: 20210827
  Transmission Date: 20211014
  Serious: Yes (Other)
  Sender: FDA-Public Use
  Company Number: US-JNJFOC-20210645826

PATIENT
  Age: 47 Year
  Sex: Female

DRUGS (7)
  1. PROTONIX [Concomitant]
     Active Substance: PANTOPRAZOLE SODIUM
     Indication: GASTROOESOPHAGEAL REFLUX DISEASE
     Dates: start: 20100101
  2. CORGARD [Concomitant]
     Active Substance: NADOLOL
     Indication: HYPERTENSION
     Dates: start: 20110101
  3. ELMIRON [Suspect]
     Active Substance: PENTOSAN POLYSULFATE SODIUM
     Indication: CYSTITIS INTERSTITIAL
     Route: 048
     Dates: start: 20100101, end: 20181231
  4. GABAPENTIN. [Concomitant]
     Active Substance: GABAPENTIN
     Indication: BACK PAIN
     Dates: start: 20160101
  5. HYDROCODONE [Concomitant]
     Active Substance: HYDROCODONE
     Indication: BACK PAIN
     Dates: start: 20100101, end: 20181231
  6. ELMIRON [Suspect]
     Active Substance: PENTOSAN POLYSULFATE SODIUM
     Route: 048
  7. TYLENOL WITH CODEINE [Concomitant]
     Active Substance: ACETAMINOPHEN\CODEINE PHOSPHATE
     Indication: BACK PAIN
     Dates: start: 20100101

REACTIONS (4)
  - Product use issue [Unknown]
  - Off label use [Unknown]
  - Dry age-related macular degeneration [Not Recovered/Not Resolved]
  - Maculopathy [Unknown]

NARRATIVE: CASE EVENT DATE: 20100101
